FAERS Safety Report 25980232 (Version 1)
Quarter: 2025Q4

REPORT INFORMATION
  Report Type: Spontaneous
  Country: IR (occurrence: IR)
  Receive Date: 20251030
  Receipt Date: 20251030
  Transmission Date: 20260118
  Serious: No
  Sender: BIOGEN
  Company Number: IR-BIOGEN-2087977

PATIENT
  Age: 36 Year
  Sex: Female

DRUGS (1)
  1. TYSABRI [Suspect]
     Active Substance: NATALIZUMAB
     Indication: Relapsing-remitting multiple sclerosis
     Dosage: 300MG/15ML
     Dates: start: 202508, end: 202509

REACTIONS (3)
  - Swelling face [Recovered/Resolved]
  - Pruritus [Recovered/Resolved]
  - Vision blurred [Recovered/Resolved]
